FAERS Safety Report 20685203 (Version 1)
Quarter: 2022Q2

REPORT INFORMATION
  Report Type: Other
  Country: US (occurrence: None)
  Receive Date: 20220407
  Receipt Date: 20220407
  Transmission Date: 20220721
  Serious: Yes (Hospitalization)
  Sender: FDA-Public Use
  Company Number: US-ROCHE-2975958

PATIENT
  Age: 0 Year
  Sex: Male
  Weight: 3.401 kg

DRUGS (3)
  1. TOCILIZUMAB [Suspect]
     Active Substance: TOCILIZUMAB
     Indication: Rheumatoid arthritis
     Route: 064
     Dates: start: 20160915, end: 20180506
  2. TOCILIZUMAB [Suspect]
     Active Substance: TOCILIZUMAB
     Route: 064
     Dates: start: 20180508
  3. TOCILIZUMAB [Suspect]
     Active Substance: TOCILIZUMAB
     Route: 064
     Dates: start: 20180605

REACTIONS (3)
  - Foetal exposure during pregnancy [Unknown]
  - Food protein-induced enterocolitis syndrome [Unknown]
  - Shock [Unknown]

NARRATIVE: CASE EVENT DATE: 20190719
